FAERS Safety Report 6423480-9 (Version None)
Quarter: 2009Q4

REPORT INFORMATION
  Report Type: 
  Country: None (occurrence: None)
  Receive Date: 20091102
  Receipt Date: 20091022
  Transmission Date: 20100525
  Serious: Yes (Hospitalization)
  Sender: FDA-Public Use
  Company Number: US-JNJFOC-20091007679

PATIENT
  Sex: Male

DRUGS (5)
  1. REMICADE [Suspect]
     Dosage: WEEK 6 (3RD INFUSION)
     Route: 042
     Dates: start: 20090101, end: 20090101
  2. REMICADE [Suspect]
     Dosage: WEEK 2
     Route: 042
     Dates: start: 20090101, end: 20090101
  3. REMICADE [Suspect]
     Indication: COLITIS ULCERATIVE
     Dosage: WEEK 0
     Route: 042
     Dates: start: 20090101, end: 20090101
  4. STEROIDS NOS [Concomitant]
     Indication: COLITIS ULCERATIVE
     Dosage: HIGH DOSE
  5. METHOTREXATE SODIUM [Concomitant]

REACTIONS (1)
  - ASPERGILLOSIS [None]
